FAERS Safety Report 14853284 (Version 3)
Quarter: 2019Q2

REPORT INFORMATION
  Report Type: Spontaneous
  Country: CH (occurrence: CH)
  Receive Date: 20180507
  Receipt Date: 20190416
  Transmission Date: 20190711
  Serious: Yes (Hospitalization, Other)
  Sender: FDA-Public Use
  Company Number: CH-AMGEN-CHESP2018059357

PATIENT
  Age: 25 Year
  Sex: Female

DRUGS (5)
  1. CALCITONIN [Concomitant]
     Active Substance: CALCITONIN
     Dosage: 20 UNIT, QH
  2. CINACALCET HCL [Suspect]
     Active Substance: CINACALCET HYDROCHLORIDE
     Indication: HYPERCALCAEMIA
     Dosage: 30 MILLIGRAM, QD
     Route: 065
  3. CINACALCET HCL [Suspect]
     Active Substance: CINACALCET HYDROCHLORIDE
     Indication: HYPERPARATHYROIDISM PRIMARY
     Dosage: 60 MILLIGRAM, QD
     Route: 065
  4. CALCITONIN [Concomitant]
     Active Substance: CALCITONIN
     Indication: HYPERCALCAEMIA
     Dosage: UNK
     Route: 045
  5. CALCITONIN [Concomitant]
     Active Substance: CALCITONIN
     Indication: HYPERPARATHYROIDISM PRIMARY
     Dosage: 12 UNIT, QH

REACTIONS (6)
  - Hypertension [Recovered/Resolved]
  - Polyhydramnios [Recovered/Resolved]
  - Off label use [Unknown]
  - Hypercalcaemia [Recovered/Resolved]
  - Maternal exposure during pregnancy [Unknown]
  - Placental insufficiency [Unknown]
